FAERS Safety Report 11755140 (Version 3)
Quarter: 2016Q1

REPORT INFORMATION
  Report Type: Spontaneous
  Country: FR (occurrence: FR)
  Receive Date: 20151119
  Receipt Date: 20160317
  Transmission Date: 20160525
  Serious: Yes (Death, Hospitalization, Other)
  Sender: FDA-Public Use
  Company Number: FR-TEVA-608797ISR

PATIENT
  Age: 46 Year
  Sex: Male

DRUGS (5)
  1. OXAZEPAM. [Concomitant]
     Active Substance: OXAZEPAM
     Route: 065
  2. SPIRAMYCIN [Suspect]
     Active Substance: SPIRAMYCIN
     Route: 065
  3. CIPROFLOXACIN. [Suspect]
     Active Substance: CIPROFLOXACIN
     Indication: PNEUMONIA CHLAMYDIAL
     Route: 065
  4. ACAMPROSATE [Concomitant]
     Active Substance: ACAMPROSATE
     Route: 065
  5. CEFTRIAXONE. [Suspect]
     Active Substance: CEFTRIAXONE
     Route: 065

REACTIONS (3)
  - Pneumonia [Fatal]
  - Shock [Fatal]
  - Acute respiratory distress syndrome [Fatal]
